FAERS Safety Report 20258139 (Version 1)
Quarter: 2021Q4

REPORT INFORMATION
  Report Type: Spontaneous
  Country: US (occurrence: US)
  Receive Date: 20211230
  Receipt Date: 20211230
  Transmission Date: 20220303
  Serious: No
  Sender: FDA-Public Use
  Company Number: US-BAYER-2021A275730

PATIENT
  Age: 73 Year
  Sex: Female
  Weight: 3.4 kg

DRUGS (16)
  1. MOXIFLOXACIN [Suspect]
     Active Substance: MOXIFLOXACIN
     Route: 048
  2. FOSAMAX [Concomitant]
     Active Substance: ALENDRONATE SODIUM
  3. AMIKACIN [Concomitant]
     Active Substance: AMIKACIN
  4. BENZONATATE [Concomitant]
     Active Substance: BENZONATATE
  5. CALCIUM CARBONATE\CHOLECALCIFEROL [Concomitant]
     Active Substance: CALCIUM CARBONATE\CHOLECALCIFEROL
  6. CLOFAZIMINE [Concomitant]
     Active Substance: CLOFAZIMINE
  7. FLEXERIL [Concomitant]
     Active Substance: CYCLOBENZAPRINE HYDROCHLORIDE
  8. DICLOFENAC [Concomitant]
     Active Substance: DICLOFENAC
  9. MYAMBUTOL [Concomitant]
     Active Substance: ETHAMBUTOL HYDROCHLORIDE
  10. NEURONTIN [Concomitant]
     Active Substance: GABAPENTIN
  11. LACTOBACILLUS ACID [Concomitant]
  12. MAGNESIUM POLYGALACTURONATE [Concomitant]
  13. MELOXICAM [Concomitant]
     Active Substance: MELOXICAM
  14. RIFAMPIN [Concomitant]
     Active Substance: RIFAMPIN
  15. REQUIP [Concomitant]
     Active Substance: ROPINIROLE HYDROCHLORIDE
  16. SODIUM CHLORIDE [Concomitant]
     Active Substance: SODIUM CHLORIDE

REACTIONS (5)
  - Nausea [None]
  - Vomiting [None]
  - Dizziness [None]
  - Flushing [None]
  - Hypersensitivity [None]
